FAERS Safety Report 8509381-0 (Version None)
Quarter: 2012Q3

REPORT INFORMATION
  Report Type: 
  Country: None (occurrence: None)
  Receive Date: 20120713
  Receipt Date: 20120528
  Transmission Date: 20120928
  Serious: Yes (Death, Hospitalization)
  Sender: FDA-Public Use
  Company Number: HR-ROCHE-1086038

PATIENT

DRUGS (11)
  1. CYCLOPHOSPHAMIDE [Suspect]
     Indication: BURKITT'S LYMPHOMA
  2. CYTARABINE [Suspect]
     Indication: BURKITT'S LYMPHOMA
  3. PREDNISONE [Suspect]
     Indication: BURKITT'S LYMPHOMA
  4. METHOTREXATE [Suspect]
     Indication: BURKITT'S LYMPHOMA
     Route: 037
  5. METHYLPREDNISOLONE [Suspect]
     Indication: PROPHYLAXIS
     Route: 037
  6. VINCRISTINE [Suspect]
     Indication: BURKITT'S LYMPHOMA
  7. MABTHERA [Suspect]
     Indication: BURKITT'S LYMPHOMA
  8. IFOSFAMIDE [Suspect]
     Indication: BURKITT'S LYMPHOMA
  9. DOXORUBICIN HYDROCHLORIDE [Suspect]
     Indication: BURKITT'S LYMPHOMA
  10. ETOPOSIDE [Suspect]
     Indication: BURKITT'S LYMPHOMA
  11. DEXAMETHASONE [Suspect]
     Indication: BURKITT'S LYMPHOMA

REACTIONS (5)
  - MULTI-ORGAN FAILURE [None]
  - FEBRILE NEUTROPENIA [None]
  - INFECTION [None]
  - TUMOUR LYSIS SYNDROME [None]
  - MUCOSAL INFLAMMATION [None]
